FAERS Safety Report 9456748 (Version 1)
Quarter: 2013Q3

REPORT INFORMATION
  Report Type: Report from Study
  Country: EE (occurrence: EE)
  Receive Date: 20130813
  Receipt Date: 20130813
  Transmission Date: 20140515
  Serious: Yes (Other)
  Sender: FDA-Public Use
  Company Number: EE-ROCHE-1261167

PATIENT
  Age: 60 Year
  Sex: Female
  Weight: 88 kg

DRUGS (5)
  1. RIVOTRIL [Suspect]
     Indication: PRODUCT USED FOR UNKNOWN INDICATION
     Route: 065
  2. HALOPERIDOL [Concomitant]
     Route: 065
  3. ABILIFY [Concomitant]
     Route: 065
  4. SEROQUEL [Concomitant]
     Route: 065
  5. CYCLODOL [Concomitant]
     Route: 065

REACTIONS (1)
  - Extrapyramidal disorder [Unknown]
